FAERS Safety Report 8921801 (Version 1)
Quarter: 2012Q4

REPORT INFORMATION
  Report Type: 
  Country: US (occurrence: US)
  Receive Date: 20121121
  Receipt Date: 20121121
  Transmission Date: 20130627
  Serious: Yes (Disabling, Other)
  Sender: FDA-Public Use
  Company Number: US-ROCHE-1157443

PATIENT
  Age: 12 Year
  Sex: Female
  Weight: 35.87 kg

DRUGS (3)
  1. XOLAIR [Suspect]
     Indication: ANGIOEDEMA
     Route: 058
     Dates: start: 20100818, end: 20120918
  2. XOLAIR [Suspect]
     Indication: URTICARIA
  3. METHOTREXATE [Concomitant]

REACTIONS (2)
  - Joint swelling [Not Recovered/Not Resolved]
  - Myalgia [Not Recovered/Not Resolved]
